FAERS Safety Report 11211225 (Version 1)
Quarter: 2015Q2

REPORT INFORMATION
  Report Type: Spontaneous
  Country: US (occurrence: None)
  Receive Date: 20150619
  Receipt Date: 20150619
  Transmission Date: 20150821
  Serious: Yes (Hospitalization)
  Sender: FDA-Public Use
  Company Number: None

PATIENT
  Age: 89 Year
  Sex: Female
  Weight: 62.9 kg

DRUGS (7)
  1. XARELTO [Suspect]
     Active Substance: RIVAROXABAN
     Indication: DEEP VEIN THROMBOSIS
     Dosage: CHRONIC
     Route: 048
  2. CALCIUM-MAG-ZINC [Concomitant]
  3. LOPRESSOR [Concomitant]
     Active Substance: METOPROLOL TARTRATE
  4. MVI [Concomitant]
     Active Substance: VITAMINS
  5. OMEGA3 [Concomitant]
  6. CRESTOR [Concomitant]
     Active Substance: ROSUVASTATIN CALCIUM
  7. VITD3 [Concomitant]

REACTIONS (5)
  - Mental status changes [None]
  - Aphasia [None]
  - Seizure [None]
  - Subdural haematoma [None]
  - Hemiplegia [None]

NARRATIVE: CASE EVENT DATE: 20150121
